FAERS Safety Report 5409320-5 (Version None)
Quarter: 2007Q3

REPORT INFORMATION
  Report Type: 
  Country: None (occurrence: None)
  Receive Date: 20070807
  Receipt Date: 20070807
  Transmission Date: 20080115
  Serious: No
  Sender: FDA-Public Use
  Company Number: None

PATIENT
  Age: 49 Year
  Sex: Male
  Weight: 103.8737 kg

DRUGS (1)
  1. DIOVAN [Suspect]
     Indication: HYPERTENSION
     Dosage: 1 PILL PER DAY IN THE MORNING PO
     Route: 048
     Dates: start: 20070730, end: 20070801

REACTIONS (3)
  - BACK PAIN [None]
  - INSOMNIA [None]
  - NOCTURIA [None]
